FAERS Safety Report 21696066 (Version 1)
Quarter: 2022Q4

REPORT INFORMATION
  Report Type: Other
  Country: DE (occurrence: DE)
  Receive Date: 20221207
  Receipt Date: 20221207
  Transmission Date: 20230113
  Serious: Yes (Hospitalization)
  Sender: FDA-Public Use
  Company Number: None

PATIENT
  Age: 72 Year
  Sex: Female
  Weight: 50 kg

DRUGS (3)
  1. IOHEXOL [Suspect]
     Active Substance: IOHEXOL
     Indication: Diagnostic procedure
     Dosage: 40 ML, SINGLE
     Route: 042
     Dates: start: 20220926, end: 20220926
  2. IOHEXOL [Suspect]
     Active Substance: IOHEXOL
     Indication: Vascular occlusion
  3. IOHEXOL [Suspect]
     Active Substance: IOHEXOL
     Indication: Vascular dissection

REACTIONS (3)
  - Sneezing [Not Recovered/Not Resolved]
  - Malaise [Not Recovered/Not Resolved]
  - Cough [Not Recovered/Not Resolved]

NARRATIVE: CASE EVENT DATE: 20220926
